FAERS Safety Report 9676519 (Version 1)
Quarter: 2013Q4

REPORT INFORMATION
  Report Type: Spontaneous
  Country: NZ (occurrence: NZ)
  Receive Date: 20131107
  Receipt Date: 20131107
  Transmission Date: 20140711
  Serious: Yes (Other)
  Sender: FDA-Public Use
  Company Number: NZ-MYLANLABS-2013S1024089

PATIENT
  Sex: Male

DRUGS (5)
  1. FLUOXETINE [Suspect]
     Indication: ANXIETY
     Route: 048
  2. FLUOXETINE [Suspect]
     Indication: DEPRESSION
     Route: 048
  3. FLUOXETINE [Suspect]
     Indication: ANXIETY
     Dosage: 5-10 MG DAILY
  4. FLUOXETINE [Suspect]
     Indication: DEPRESSION
     Dosage: 5-10 MG DAILY
  5. ASPIRIN [Concomitant]
     Indication: PRODUCT USED FOR UNKNOWN INDICATION
     Route: 048

REACTIONS (9)
  - Feeling abnormal [Recovered/Resolved]
  - Mania [Recovered/Resolved]
  - Anxiety [Recovered/Resolved]
  - Tension [Recovered/Resolved]
  - Blood pressure increased [Recovered/Resolved]
  - Heart rate increased [Recovered/Resolved]
  - Sleep disorder [Recovered/Resolved]
  - Agitation [Recovered/Resolved]
  - Restlessness [Recovered/Resolved]
